FAERS Safety Report 4606229-1 (Version None)
Quarter: 2005Q1

REPORT INFORMATION
  Report Type: 
  Country: None (occurrence: None)
  Receive Date: 20050116
  Receipt Date: 20040930
  Transmission Date: 20050727
  Serious: Yes (Life-Threatening)
  Sender: FDA-Public Use
  Company Number: K200401499

PATIENT
  Age: 48 Year
  Sex: Male
  Weight: 117.9 kg

DRUGS (8)
  1. EPIPEN [Suspect]
     Indication: ALLERGY TO ARTHROPOD STING
     Dosage: 1 UNIT, SINGLE, INTRAMUSCULAR
     Route: 030
     Dates: start: 20040929, end: 20040929
  2. XANAX [Concomitant]
  3. INDERAL [Concomitant]
  4. TETRACYCLINE [Concomitant]
  5. MOBIC [Concomitant]
  6. ZOCOR [Concomitant]
  7. AMBIEN [Concomitant]
  8. ASPIRIN [Concomitant]

REACTIONS (1)
  - DRUG INEFFECTIVE [None]
